FAERS Safety Report 8608361-4 (Version None)
Quarter: 2012Q3

REPORT INFORMATION
  Report Type: 
  Country: None (occurrence: None)
  Receive Date: 20120821
  Receipt Date: 20120808
  Transmission Date: 20120928
  Serious: Yes (Other)
  Sender: FDA-Public Use
  Company Number: SE-CELGENEUS-150-C5013-11113557

PATIENT
  Sex: Female
  Weight: 82 kg

DRUGS (12)
  1. LENALIDOMIDE [Suspect]
     Indication: MULTIPLE MYELOMA
     Dosage: 25 MILLIGRAM
     Route: 048
     Dates: start: 20100831
  2. OXYCODONE HCL [Concomitant]
     Indication: BACK PAIN
     Route: 065
     Dates: start: 20100723
  3. METOPROLOL TARTRATE [Concomitant]
     Indication: HYPERTENSION
     Route: 065
     Dates: start: 20100420
  4. DEXAMETHASONE [Suspect]
     Indication: MULTIPLE MYELOMA
     Dosage: 40 MILLIGRAM
     Route: 065
     Dates: start: 20100831
  5. DALTEPARINNATRIUM [Concomitant]
     Indication: PROPHYLAXIS
     Route: 065
     Dates: start: 20100831
  6. DEXAMETHASONE [Suspect]
     Dosage: 40 MILLIGRAM
     Route: 065
     Dates: start: 20111122, end: 20111124
  7. PAMIDRONSYRA [Concomitant]
     Indication: PROPHYLAXIS
     Route: 065
     Dates: start: 20100809
  8. ACETAMINOPHEN [Concomitant]
     Indication: BACK PAIN
     Route: 065
     Dates: start: 20100817
  9. LENALIDOMIDE [Suspect]
     Dosage: 25 MILLIGRAM
     Route: 048
     Dates: start: 20111122, end: 20111124
  10. AMILORD/HYDROKLOTIAZID [Concomitant]
     Indication: HYPERTENSION
     Dosage: 5/50
     Route: 065
     Dates: start: 20100420
  11. OXYCODONE HCL [Concomitant]
     Indication: CHEST PAIN
  12. OXYCONTIN [Concomitant]
     Indication: BACK PAIN
     Route: 065
     Dates: start: 20110802

REACTIONS (2)
  - SQUAMOUS CELL CARCINOMA OF SKIN [None]
  - ACTINIC KERATOSIS [None]
